FAERS Safety Report 9594774 (Version 1)
Quarter: 2013Q3

REPORT INFORMATION
  Report Type: Spontaneous
  Country: US (occurrence: None)
  Receive Date: 20130927
  Receipt Date: 20130927
  Transmission Date: 20140515
  Serious: Yes (Hospitalization)
  Sender: FDA-Public Use
  Company Number: CABO-13003145

PATIENT
  Age: 60 Year
  Sex: Female
  Weight: 58.2 kg

DRUGS (6)
  1. COMETRIQ [Suspect]
     Indication: LUNG NEOPLASM MALIGNANT
     Route: 048
     Dates: start: 20130416, end: 20130808
  2. COMETRIQ [Suspect]
     Indication: METASTASES TO CENTRAL NERVOUS SYSTEM
     Route: 048
     Dates: start: 20130416, end: 20130808
  3. MORPHINE [Concomitant]
  4. MENTINE [Concomitant]
  5. BISCODYL [Concomitant]
  6. FAMOTIDINE [Concomitant]

REACTIONS (1)
  - Thrombosis [None]
